FAERS Safety Report 21541147 (Version 1)
Quarter: 2022Q4

REPORT INFORMATION
  Report Type: Spontaneous
  Country: FR (occurrence: FR)
  Receive Date: 20221102
  Receipt Date: 20221102
  Transmission Date: 20230112
  Serious: Yes (Hospitalization, Other)
  Sender: FDA-Public Use
  Company Number: None

PATIENT
  Age: 46 Year
  Sex: Female
  Weight: 71 kg

DRUGS (3)
  1. CLINDAMYCIN [Suspect]
     Active Substance: CLINDAMYCIN
     Indication: Brain abscess
     Dosage: 600MG X3/J
     Route: 048
     Dates: start: 20220705, end: 20220726
  2. LINEZOLID [Concomitant]
     Active Substance: LINEZOLID
     Indication: Product used for unknown indication
     Dosage: 600MG X2/J
     Route: 042
     Dates: start: 20220616, end: 20220705
  3. MEROPENEM [Concomitant]
     Active Substance: MEROPENEM
     Indication: Brain abscess
     Route: 042
     Dates: start: 20220616, end: 20220703

REACTIONS (2)
  - Neutropenia [Recovered/Resolved]
  - Lymphopenia [Recovering/Resolving]

NARRATIVE: CASE EVENT DATE: 20220711
